FAERS Safety Report 11560349 (Version 1)
Quarter: 2015Q3

REPORT INFORMATION
  Report Type: Spontaneous
  Country: US (occurrence: US)
  Receive Date: 20150928
  Receipt Date: 20150928
  Transmission Date: 20151125
  Serious: No
  Sender: FDA-Public Use
  Company Number: US-PERRIGO-15US005981

PATIENT
  Age: 50 Year
  Sex: Male
  Weight: 72.56 kg

DRUGS (2)
  1. NICOTINE POLACRILEX, COATED MINT FLAVOR [Suspect]
     Active Substance: NICOTINE
     Indication: SMOKING CESSATION THERAPY
     Dosage: 2 MG, EVERY 3 HOURS
     Route: 002
     Dates: start: 2014, end: 201506
  2. NICOTINE POLACRILEX, COATED MINT FLAVOR [Suspect]
     Active Substance: NICOTINE
     Dosage: 2 MG, EVERY 3 HOURS
     Route: 002
     Dates: start: 201506, end: 201506

REACTIONS (1)
  - Device failure [Not Recovered/Not Resolved]

NARRATIVE: CASE EVENT DATE: 20150607
